FAERS Safety Report 8454184-9 (Version None)
Quarter: 2012Q2

REPORT INFORMATION
  Report Type: 
  Country: None (occurrence: None)
  Receive Date: 20120620
  Receipt Date: 20120618
  Transmission Date: 20120825
  Serious: Yes (Other)
  Sender: FDA-Public Use
  Company Number: PL-ROCHE-1079682

PATIENT
  Age: 60 Year
  Sex: Female

DRUGS (2)
  1. XELODA [Suspect]
     Indication: COLORECTAL CANCER
  2. OXALIPLATIN [Suspect]
     Indication: COLORECTAL CANCER

REACTIONS (2)
  - INTESTINAL OBSTRUCTION [None]
  - DIARRHOEA [None]
